FAERS Safety Report 8618796-1 (Version None)
Quarter: 2012Q3

REPORT INFORMATION
  Report Type: 
  Country: None (occurrence: None)
  Receive Date: 20120824
  Receipt Date: 20120810
  Transmission Date: 20120928
  Serious: Yes (Death)
  Sender: FDA-Public Use
  Company Number: US-JNJFOC-20120608205

PATIENT
  Age: 4 Year
  Sex: Female

DRUGS (2)
  1. BENADRYL [Suspect]
     Indication: SLEEP DISORDER THERAPY
     Route: 065
  2. TUSSIONEX [Interacting]
     Indication: CROUP INFECTIOUS
     Dosage: HALF TEASPOON, ONCE A DAY
     Route: 065

REACTIONS (4)
  - DRUG INTERACTION [None]
  - TOXICITY TO VARIOUS AGENTS [None]
  - OFF LABEL USE [None]
  - WRONG DRUG ADMINISTERED [None]
